FAERS Safety Report 7967370-9 (Version None)
Quarter: 2011Q4

REPORT INFORMATION
  Report Type: 
  Country: None (occurrence: None)
  Receive Date: 20111209
  Receipt Date: 20111205
  Transmission Date: 20120403
  Serious: Yes (Congenital Anomaly, Other)
  Sender: FDA-Public Use
  Company Number: US-JNJFOC-20111203494

PATIENT

DRUGS (1)
  1. TOPAMAX [Suspect]
     Indication: FOETAL EXPOSURE DURING PREGNANCY
     Route: 064
     Dates: start: 20060803, end: 20061006

REACTIONS (7)
  - EAR INFECTION [None]
  - DIABETES MELLITUS [None]
  - FAILURE TO THRIVE [None]
  - DRUG WITHDRAWAL SYNDROME NEONATAL [None]
  - JAUNDICE [None]
  - GASTROOESOPHAGEAL REFLUX DISEASE [None]
  - SPINA BIFIDA [None]
